FAERS Safety Report 5337274-9 (Version None)
Quarter: 2007Q2

REPORT INFORMATION
  Report Type: 
  Country: None (occurrence: None)
  Receive Date: 20070529
  Receipt Date: 20070523
  Transmission Date: 20071010
  Serious: Yes (Other)
  Sender: FDA-Public Use
  Company Number: B0472101A

PATIENT
  Age: 38 Year
  Sex: Female

DRUGS (1)
  1. SEROXAT [Suspect]
     Indication: CHRONIC FATIGUE SYNDROME
     Route: 048
     Dates: start: 19950101, end: 20050401

REACTIONS (9)
  - ALCOHOL POISONING [None]
  - DEREALISATION [None]
  - ELECTRIC SHOCK [None]
  - FATIGUE [None]
  - HALLUCINATIONS, MIXED [None]
  - MYALGIA [None]
  - PALPITATIONS [None]
  - PARAESTHESIA [None]
  - TREMOR [None]
